FAERS Safety Report 7492107-X (Version None)
Quarter: 2011Q2

REPORT INFORMATION
  Report Type: 
  Country: None (occurrence: None)
  Receive Date: 20110512
  Receipt Date: 20110506
  Transmission Date: 20111010
  Serious: Yes (Hospitalization, Other)
  Sender: FDA-Public Use
  Company Number: 2009-198567-NL

PATIENT
  Age: 21 Year
  Sex: Female
  Weight: 69.4003 kg

DRUGS (4)
  1. CEPHALEXIN [Concomitant]
  2. AMITRIPTYLENE [Concomitant]
  3. MIRENA [Suspect]
     Indication: CONTRACEPTION
     Dates: start: 20091229
  4. NUVARING [Suspect]
     Indication: CONTRACEPTION
     Dates: start: 20061221

REACTIONS (11)
  - ESCHERICHIA TEST POSITIVE [None]
  - PARAESTHESIA [None]
  - GASTROENTERITIS [None]
  - MENORRHAGIA [None]
  - MENSTRUATION IRREGULAR [None]
  - HEADACHE [None]
  - MIGRAINE [None]
  - PULMONARY EMBOLISM [None]
  - VIRAL INFECTION [None]
  - NAUSEA [None]
  - VAGINITIS BACTERIAL [None]
